FAERS Safety Report 18416040 (Version 1)
Quarter: 2020Q4

REPORT INFORMATION
  Report Type: Spontaneous
  Country: US (occurrence: US)
  Receive Date: 20201022
  Receipt Date: 20201022
  Transmission Date: 20210114
  Serious: Yes (Death, Other)
  Sender: FDA-Public Use
  Company Number: US-BAXTER-2020BAX021261

PATIENT

DRUGS (3)
  1. DOPAMINE HYDROCHLORIDE AND DEXTROSE [Suspect]
     Active Substance: DOPAMINE HYDROCHLORIDE
     Indication: PRODUCT USED FOR UNKNOWN INDICATION
     Route: 065
  2. 0.9% SODIUM CHLORIDE INJECTION [Suspect]
     Active Substance: SODIUM CHLORIDE
     Indication: PRODUCT USED FOR UNKNOWN INDICATION
     Dosage: INFUSION RATE: 999 MILLILITER/HOUR (ML/HR).
     Route: 065
     Dates: start: 20200922
  3. DOPAMINE HYDROCHLORIDE AND DEXTROSE [Suspect]
     Active Substance: DOPAMINE HYDROCHLORIDE
     Dosage: INCREASED DOPAMINE INFUSION TO 20 (UNIT NOT REPORTED)
     Route: 065
     Dates: start: 20200922

REACTIONS (3)
  - Device connection issue [Unknown]
  - Pulseless electrical activity [Fatal]
  - Haemorrhage [Unknown]

NARRATIVE: CASE EVENT DATE: 20200922
